FAERS Safety Report 7374047-X (Version None)
Quarter: 2011Q1

REPORT INFORMATION
  Report Type: 
  Country: None (occurrence: None)
  Receive Date: 20110325
  Receipt Date: 20110318
  Transmission Date: 20110831
  Serious: Yes (Hospitalization)
  Sender: FDA-Public Use
  Company Number: US-BAYER-2011-025734

PATIENT
  Sex: Female

DRUGS (4)
  1. OCELLA [Suspect]
     Dosage: UNK
     Dates: start: 20050101
  2. YAZ [Suspect]
     Dosage: UNK
     Dates: start: 20050101
  3. OCELLA [Suspect]
     Dosage: UNK
     Dates: start: 20090126
  4. YASMIN [Suspect]
     Dosage: UNK
     Dates: start: 20050101

REACTIONS (4)
  - INJURY [None]
  - GALLBLADDER DISORDER [None]
  - ANXIETY [None]
  - PAIN [None]
